FAERS Safety Report 6205049-4 (Version None)
Quarter: 2009Q2

REPORT INFORMATION
  Report Type: 
  Country: None (occurrence: None)
  Receive Date: 20090527
  Receipt Date: 20090217
  Transmission Date: 20091009
  Serious: No
  Sender: FDA-Public Use
  Company Number: US-ABBOTT-09P-163-0558105-00

PATIENT

DRUGS (3)
  1. SIMCOR [Suspect]
     Indication: BLOOD CHOLESTEROL INCREASED
     Dosage: 500/20 MG
  2. SEROQUEL [Concomitant]
     Indication: DRUG USE FOR UNKNOWN INDICATION
  3. SYMBICORT [Concomitant]
     Indication: DRUG USE FOR UNKNOWN INDICATION
     Dosage: RARELY USES

REACTIONS (2)
  - ARTHRALGIA [None]
  - DECREASED APPETITE [None]
